FAERS Safety Report 5958588-5 (Version None)
Quarter: 2008Q4

REPORT INFORMATION
  Report Type: 
  Country: None (occurrence: None)
  Receive Date: 20081110
  Receipt Date: 20081012
  Transmission Date: 20090506
  Serious: Yes (Death, Other)
  Sender: FDA-Public Use
  Company Number: CHPA2008US18027

PATIENT
  Age: 16 Month
  Sex: Male

DRUGS (5)
  1. DIPHENHYDRAMINE HYDROCHLORIDE [Suspect]
     Dosage: ORAL
     Route: 048
  2. OXYCODONE HCL [Suspect]
     Dosage: ORAL
     Route: 048
  3. TRAMADOL HCL [Suspect]
     Dosage: ORAL
     Route: 048
  4. NAPROXEN [Suspect]
     Dosage: ORAL
     Route: 048
  5. ^H2 ANTAGONIST^ () [Suspect]
     Dosage: ORAL
     Route: 048

REACTIONS (1)
  - ACCIDENTAL DRUG INTAKE BY CHILD [None]
